FAERS Safety Report 8020906-4 (Version None)
Quarter: 2011Q4

REPORT INFORMATION
  Report Type: 
  Country: None (occurrence: None)
  Receive Date: 20111229
  Receipt Date: 20111229
  Transmission Date: 20120403
  Serious: Yes (Hospitalization)
  Sender: FDA-Public Use
  Company Number: None

PATIENT
  Age: 63 Year
  Sex: Male
  Weight: 95.5 kg

DRUGS (1)
  1. EVEROLIMUS [Suspect]
     Indication: NEOPLASM MALIGNANT
     Dosage: 10 MG EVERYDAY PO
     Route: 048
     Dates: start: 20110707, end: 20110820

REACTIONS (6)
  - TREMOR [None]
  - RASH [None]
  - TEMPERATURE INTOLERANCE [None]
  - DERMATITIS [None]
  - PYREXIA [None]
  - CHILLS [None]
